FAERS Safety Report 5145707-6 (Version None)
Quarter: 2006Q4

REPORT INFORMATION
  Report Type: 
  Country: None (occurrence: None)
  Receive Date: 20060906
  Receipt Date: 20050811
  Transmission Date: 20070319
  Serious: Yes (Hospitalization)
  Sender: FDA-Public Use
  Company Number: WAES 0508USA02129

PATIENT
  Age: 52 Year
  Sex: Female

DRUGS (3)
  1. MAXALT [Suspect]
     Indication: MIGRAINE
     Dosage: 10 MG/PRN/PO
     Route: 048
     Dates: start: 20050808, end: 20050808
  2. BENADRYL [Concomitant]
  3. METFORMIN [Concomitant]

REACTIONS (3)
  - DEHYDRATION [None]
  - HEADACHE [None]
  - VOMITING [None]
